FAERS Safety Report 9867141 (Version 1)
Quarter: 2014Q1

REPORT INFORMATION
  Report Type: Spontaneous
  Country: US (occurrence: None)
  Receive Date: 20140131
  Receipt Date: 20140131
  Transmission Date: 20141002
  Serious: Yes (Death)
  Sender: FDA-Public Use
  Company Number: 2014AP000490

PATIENT
  Age: 72 Year
  Sex: Female

DRUGS (5)
  1. ZOLPIDEM TARTRATE TABLETS [Suspect]
     Route: 048
  2. TOPIRAMATE TABLETS [Suspect]
  3. ACETAMINOPHEN W/HYDROCODONE [Suspect]
     Route: 048
  4. DIAZEPAM [Suspect]
     Route: 048
  5. VENLAFAXINE [Suspect]

REACTIONS (1)
  - Completed suicide [None]
